FAERS Safety Report 10344411 (Version 3)
Quarter: 2014Q3

REPORT INFORMATION
  Report Type: Spontaneous
  Country: US (occurrence: US)
  Receive Date: 20140728
  Receipt Date: 20140813
  Transmission Date: 20150326
  Serious: Yes (Hospitalization)
  Sender: FDA-Public Use
  Company Number: US-ACTELION-A-NJ2014-102213

PATIENT
  Age: 36 Year
  Sex: Female

DRUGS (2)
  1. VELETRI [Suspect]
     Active Substance: EPOPROSTENOL
     Indication: PULMONARY ARTERIAL HYPERTENSION
     Dosage: 52 NG/KG, PER MIN
     Route: 042
     Dates: start: 20100125
  2. ADCIRCA [Concomitant]
     Active Substance: TADALAFIL

REACTIONS (9)
  - Catheter site pain [Recovering/Resolving]
  - Catheter management [Unknown]
  - Foreign body reaction [Recovering/Resolving]
  - Catheter site erythema [Recovering/Resolving]
  - Device breakage [Unknown]
  - Catheter site warmth [Recovering/Resolving]
  - Catheter site swelling [Recovering/Resolving]
  - Catheter site discharge [Recovering/Resolving]
  - Culture positive [Recovering/Resolving]

NARRATIVE: CASE EVENT DATE: 20140708
